FAERS Safety Report 14899811 (Version 1)
Quarter: 2018Q2

REPORT INFORMATION
  Report Type: Spontaneous
  Country: DE (occurrence: DE)
  Receive Date: 20180516
  Receipt Date: 20180516
  Transmission Date: 20180711
  Serious: Yes (Death, Life-Threatening, Hospitalization)
  Sender: FDA-Public Use
  Company Number: DE-SUN PHARMACEUTICAL INDUSTRIES LTD-2018RR-172953

PATIENT
  Age: 57 Year
  Sex: Male
  Weight: 86 kg

DRUGS (9)
  1. OXALIPLATIN. [Suspect]
     Active Substance: OXALIPLATIN
     Indication: COLORECTAL CANCER
     Dosage: 170 MG, UNK
     Route: 065
     Dates: start: 20130506, end: 20131022
  2. FLUOROURACIL. [Suspect]
     Active Substance: FLUOROURACIL
     Dosage: 800 MG, UNK
     Route: 040
     Dates: start: 20130506, end: 20131023
  3. REMERGIL [Concomitant]
     Active Substance: MIRTAZAPINE
     Indication: DEPRESSION
     Dosage: DAILY DOSE: 15 MG MILLGRAM(S) EVERY DAYS
     Route: 048
     Dates: start: 20120101
  4. AVASTIN [Suspect]
     Active Substance: BEVACIZUMAB
     Indication: COLORECTAL CANCER
     Dosage: 400 MG, UNK
     Route: 042
     Dates: start: 20130507, end: 20130507
  5. AVASTIN [Suspect]
     Active Substance: BEVACIZUMAB
     Dosage: 425 MG, UNK
     Route: 042
     Dates: start: 20130605, end: 20130605
  6. FLUOROURACIL. [Suspect]
     Active Substance: FLUOROURACIL
     Indication: COLORECTAL CANCER
     Dosage: 1200 MG, UNK
     Route: 041
     Dates: start: 20130506, end: 20131024
  7. AVASTIN [Suspect]
     Active Substance: BEVACIZUMAB
     Dosage: 425 MG, UNK
     Route: 042
     Dates: start: 20130522, end: 20130522
  8. BISOPROLOL [Concomitant]
     Active Substance: BISOPROLOL
     Indication: HYPERTENSION
     Dosage: ()
     Route: 065
     Dates: start: 20130529
  9. PANTOZOL [Concomitant]
     Active Substance: PANTOPRAZOLE SODIUM
     Indication: PROPHYLAXIS
     Dosage: DAILY DOSE: 40 MG MILLGRAM(S) EVERY DAYS
     Route: 048
     Dates: start: 20130618

REACTIONS (4)
  - Abdominal pain [Not Recovered/Not Resolved]
  - Death [Fatal]
  - Dyspnoea [Not Recovered/Not Resolved]
  - Pulmonary embolism [Recovering/Resolving]

NARRATIVE: CASE EVENT DATE: 20130602
